FAERS Safety Report 7259255-0 (Version None)
Quarter: 2011Q1

REPORT INFORMATION
  Report Type: 
  Country: None (occurrence: None)
  Receive Date: 20110129
  Receipt Date: 20100813
  Transmission Date: 20110831
  Serious: No
  Sender: FDA-Public Use
  Company Number: US-ABBOTT-10P-163-0664302-00

PATIENT
  Age: 45 Year
  Sex: Female

DRUGS (5)
  1. NABUMETONE [Concomitant]
     Indication: ARTHRITIS
  2. SYNTHROID [Concomitant]
     Indication: PRODUCT USED FOR UNKNOWN INDICATION
     Dosage: 100 MCG DAILY
  3. ESTRADIOL [Concomitant]
     Indication: HORMONE REPLACEMENT THERAPY
     Dosage: 2MG DAILY
  4. HUMIRA [Suspect]
     Indication: PSORIATIC ARTHROPATHY
     Dates: start: 20100701
  5. URSO FORTE [Concomitant]
     Indication: LIVER INJURY

REACTIONS (1)
  - PSORIASIS [None]
